FAERS Safety Report 12508330 (Version 1)
Quarter: 2016Q2

REPORT INFORMATION
  Report Type: Spontaneous
  Country: US (occurrence: US)
  Receive Date: 20160629
  Receipt Date: 20160629
  Transmission Date: 20160815
  Serious: Yes (Hospitalization)
  Sender: FDA-Public Use
  Company Number: US-PFIZER INC-2016317543

PATIENT
  Age: 67 Year
  Sex: Male
  Weight: 74 kg

DRUGS (20)
  1. HYDRALAZINE [Concomitant]
     Active Substance: HYDRALAZINE HYDROCHLORIDE
     Dosage: 100 MG, 3X/DAY
  2. NEPHRO-VITE [Concomitant]
     Indication: DIALYSIS
     Dosage: 1 DF, DAILY, PILL
  3. DUREZOL [Concomitant]
     Active Substance: DIFLUPREDNATE
     Dosage: 0.05 %, 4X/DAY
  4. ALLOPURINOL. [Concomitant]
     Active Substance: ALLOPURINOL
     Dosage: 100 MG, 4X/DAY
  5. ZOLPIDEM TARTRATE. [Concomitant]
     Active Substance: ZOLPIDEM TARTRATE
     Indication: SLEEP DISORDER
     Dosage: 5 MG, ONE OTHER DAY
  6. BABY ASPIRIN [Concomitant]
     Active Substance: ASPIRIN
     Dosage: 81 MG, UNK
  7. RENVELA [Concomitant]
     Active Substance: SEVELAMER CARBONATE
     Dosage: FOUR DOSE A DAY DIVIDED BY 800
  8. LYRICA [Suspect]
     Active Substance: PREGABALIN
     Indication: DIABETIC NEUROPATHY
     Dosage: 50 MG, 1X/DAY
     Route: 048
     Dates: start: 201606
  9. GRAZOPREVIR [Concomitant]
     Active Substance: GRAZOPREVIR
     Indication: HEPATITIS C
     Dosage: 100 MG, 1X/DAY
  10. TIMOLOL. [Concomitant]
     Active Substance: TIMOLOL
     Indication: GLAUCOMA
     Dosage: 0.5 %, 2X/DAY
  11. ELBASVIR [Concomitant]
     Active Substance: ELBASVIR
     Indication: HEPATITIS C
     Dosage: 50 MG, 1X/DAY
  12. VITAMIN D /00107901/ [Concomitant]
     Active Substance: ERGOCALCIFEROL
     Dosage: 5000 IU, MONTHLY, ONCE A MONTH
  13. REGRANEX [Concomitant]
     Active Substance: BECAPLERMIN
     Dosage: 0.01 %, UNK
  14. LEVOTHYROXINE. [Concomitant]
     Active Substance: LEVOTHYROXINE
     Dosage: 75 UG, 1X/DAY
  15. LISINOPRIL. [Concomitant]
     Active Substance: LISINOPRIL
     Dosage: 10 MG, 1X/DAY
  16. OMEPRAZOLE. [Concomitant]
     Active Substance: OMEPRAZOLE
     Dosage: 40 MG, 2X/DAY
  17. INSULIN [Concomitant]
     Active Substance: INSULIN NOS
     Indication: DIABETES MELLITUS
     Dosage: UNK UNK, 4X/DAY
  18. AMLODIPINE [Concomitant]
     Active Substance: AMLODIPINE BESYLATE
     Dosage: 200 MG, UNK
  19. FUROSEMIDE. [Concomitant]
     Active Substance: FUROSEMIDE
     Dosage: 40 MG, TWO PILLS ORALLY ON TUESDAY, THURSDAY, SATURDAY AND SUNDAY ON NON DIALYSIS DAYS
     Route: 048
  20. LOPRESSOR [Concomitant]
     Active Substance: METOPROLOL TARTRATE
     Dosage: 25 MG, 2X/DAY

REACTIONS (5)
  - Fatigue [Not Recovered/Not Resolved]
  - Chest pain [Recovered/Resolved]
  - Condition aggravated [Unknown]
  - Asthenia [Unknown]
  - Vision blurred [Unknown]

NARRATIVE: CASE EVENT DATE: 20160612
